FAERS Safety Report 9133450 (Version 3)
Quarter: 2013Q4

REPORT INFORMATION
  Report Type: Spontaneous
  Country: FR (occurrence: FR)
  Receive Date: 20130301
  Receipt Date: 20131017
  Transmission Date: 20140711
  Serious: Yes (Life-Threatening, Other)
  Sender: FDA-Public Use
  Company Number: FR-ASTRAZENECA-2013SE12085

PATIENT
  Age: 785 Month
  Sex: Female
  Weight: 72 kg

DRUGS (11)
  1. XEROQUEL [Suspect]
     Indication: PSYCHOTIC DISORDER
     Route: 048
     Dates: start: 20130128, end: 20130131
  2. XEROQUEL [Interacting]
     Indication: DEPRESSION
     Route: 048
     Dates: start: 20130128, end: 20130131
  3. XEROQUEL [Interacting]
     Indication: PSYCHOTIC DISORDER
     Route: 048
     Dates: start: 20130206, end: 20130208
  4. XEROQUEL [Interacting]
     Indication: DEPRESSION
     Route: 048
     Dates: start: 20130206, end: 20130208
  5. DEPAKOTE [Suspect]
     Indication: MOOD ALTERED
     Route: 048
     Dates: start: 20130128, end: 20130215
  6. OFLOXACIN [Interacting]
     Indication: BRONCHITIS
     Route: 048
     Dates: start: 20130204, end: 20130211
  7. OFLOXACIN [Interacting]
     Indication: NASOPHARYNGITIS
     Route: 048
     Dates: start: 20130204, end: 20130211
  8. ACETYLCYSTEIN [Interacting]
     Indication: BRONCHITIS
     Route: 048
     Dates: start: 20130129, end: 20130208
  9. ACETYLCYSTEIN [Interacting]
     Indication: NASOPHARYNGITIS
     Route: 048
     Dates: start: 20130129, end: 20130208
  10. OROKEN [Concomitant]
     Indication: BRONCHITIS
     Route: 048
     Dates: start: 20130204, end: 20130211
  11. OROKEN [Concomitant]
     Indication: NASOPHARYNGITIS
     Route: 048
     Dates: start: 20130204, end: 20130211

REACTIONS (11)
  - Drug interaction [Recovered/Resolved]
  - Loss of consciousness [Recovered/Resolved]
  - Disturbance in attention [Recovered/Resolved]
  - Orthostatic hypotension [Recovered/Resolved]
  - Syncope [Recovered/Resolved]
  - Blood pressure immeasurable [Recovered/Resolved]
  - Hyperthermia [Recovered/Resolved]
  - General symptom [Recovered/Resolved]
  - Nasopharyngitis [Recovered/Resolved]
  - Bronchitis [Recovered/Resolved]
  - Pallor [Recovered/Resolved]
